FAERS Safety Report 6762328-X (Version None)
Quarter: 2010Q2

REPORT INFORMATION
  Report Type: 
  Country: None (occurrence: None)
  Receive Date: 20100609
  Receipt Date: 20100528
  Transmission Date: 20101027
  Serious: Yes (Other)
  Sender: FDA-Public Use
  Company Number: PHHY2010BR35045

PATIENT
  Age: 5 Year
  Sex: Female
  Weight: 21 kg

DRUGS (3)
  1. TRILEPTAL [Suspect]
     Indication: ATTENTION DEFICIT/HYPERACTIVITY DISORDER
     Dosage: 10 ML, QD
     Route: 048
  2. TRILEPTAL [Suspect]
     Dosage: 10 ML, BID
     Route: 048
     Dates: start: 20100528
  3. METHYLPHENIDATE HCL [Concomitant]
     Indication: ATTENTION DEFICIT/HYPERACTIVITY DISORDER

REACTIONS (3)
  - CONVULSION [None]
  - HYPOTONIA [None]
  - SOMNOLENCE [None]
